FAERS Safety Report 12340938 (Version 7)
Quarter: 2016Q4

REPORT INFORMATION
  Report Type: Spontaneous
  Country: US (occurrence: US)
  Receive Date: 20160506
  Receipt Date: 20161104
  Transmission Date: 20170207
  Serious: Yes (Hospitalization, Other)
  Sender: FDA-Public Use
  Company Number: US-PFIZER INC-2016244028

PATIENT
  Age: 59 Year
  Sex: Male
  Weight: 102 kg

DRUGS (10)
  1. ATIVAN [Concomitant]
     Active Substance: LORAZEPAM
     Indication: ANXIETY
     Dosage: 2 MG, 3X/DAY
     Dates: start: 2015
  2. INVOKANA [Concomitant]
     Active Substance: CANAGLIFLOZIN
     Indication: DIABETES MELLITUS
     Dosage: 300 MG, 1X/DAY
  3. GLIPTIDE [Concomitant]
     Indication: DIABETES MELLITUS
     Dosage: 5MG IN THE MORNING
  4. LEVEMIR [Concomitant]
     Active Substance: INSULIN DETEMIR
     Indication: DIABETES MELLITUS
     Dosage: 55 UNITS AT BEDTIME
  5. LYRICA [Suspect]
     Active Substance: PREGABALIN
     Indication: FIBROMYALGIA
     Dosage: 125 MG, 3X/DAY
     Route: 048
  6. SEROQUEL [Concomitant]
     Active Substance: QUETIAPINE FUMARATE
     Indication: MOOD ALTERED
     Dosage: 300 MG, 1X/DAY
     Dates: start: 2015
  7. LYRICA [Suspect]
     Active Substance: PREGABALIN
     Indication: DIABETIC NEUROPATHY
     Dosage: SPORADICALLY AND OCCASIONALLY 75MG 2 CAPSULES AT A TIME
     Route: 048
     Dates: end: 20160503
  8. LYRICA [Suspect]
     Active Substance: PREGABALIN
     Dosage: 150 MG, 3X/DAY
     Route: 048
     Dates: start: 20160614
  9. LYRICA [Suspect]
     Active Substance: PREGABALIN
     Dosage: 150 MG, UNK
  10. LACTULOSE. [Concomitant]
     Active Substance: LACTULOSE
     Indication: AMMONIA INCREASED
     Dosage: 15 MLS AT NIGHT
     Dates: start: 201504

REACTIONS (14)
  - Suicidal ideation [Recovered/Resolved]
  - Chest pain [Unknown]
  - Scrotal pain [Not Recovered/Not Resolved]
  - Blood glucose abnormal [Unknown]
  - Pain in extremity [Recovering/Resolving]
  - Drug dose omission [Unknown]
  - Bone pain [Not Recovered/Not Resolved]
  - Pneumonia [Recovering/Resolving]
  - Sepsis [Recovered/Resolved]
  - Pain [Not Recovered/Not Resolved]
  - Condition aggravated [Not Recovered/Not Resolved]
  - Eyelid pain [Not Recovered/Not Resolved]
  - Withdrawal syndrome [Unknown]
  - Mental disorder [Not Recovered/Not Resolved]

NARRATIVE: CASE EVENT DATE: 2016
